FAERS Safety Report 5118252-1 (Version None)
Quarter: 2006Q4

REPORT INFORMATION
  Report Type: 
  Country: None (occurrence: None)
  Receive Date: 20061002
  Receipt Date: 20060713
  Transmission Date: 20070319
  Serious: No
  Sender: FDA-Public Use
  Company Number: US-BRISTOL-MYERS SQUIBB COMPANY-13442165

PATIENT
  Age: 59 Year
  Sex: Female
  Weight: 61 kg

DRUGS (5)
  1. ORENCIA [Suspect]
     Indication: RHEUMATOID ARTHRITIS
     Route: 042
     Dates: start: 20060619
  2. LEVOTHYROXINE SODIUM [Concomitant]
  3. FOSAMAX [Concomitant]
  4. NAPROSYN [Concomitant]
  5. PREDNISONE [Concomitant]

REACTIONS (1)
  - DRUG INEFFECTIVE [None]
